FAERS Safety Report 6359871-4 (Version None)
Quarter: 2009Q3

REPORT INFORMATION
  Report Type: 
  Country: None (occurrence: None)
  Receive Date: 20090917
  Receipt Date: 20090908
  Transmission Date: 20100115
  Serious: Yes (Hospitalization)
  Sender: FDA-Public Use
  Company Number: D0062829A

PATIENT
  Age: 46 Year
  Sex: Male

DRUGS (6)
  1. REQUIP [Suspect]
     Indication: PARKINSON'S DISEASE
     Route: 048
  2. LIORESAL [Suspect]
     Route: 065
  3. DOLORMIN [Suspect]
     Route: 065
  4. NACOM [Suspect]
     Route: 065
  5. PANTOZOL [Suspect]
     Route: 065
  6. BOTULINUM TOXIN [Suspect]
     Route: 065

REACTIONS (3)
  - DRUG INEFFECTIVE [None]
  - GAIT DISTURBANCE [None]
  - PAIN [None]
